FAERS Safety Report 8401935-5 (Version None)
Quarter: 2012Q2

REPORT INFORMATION
  Report Type: 
  Country: None (occurrence: None)
  Receive Date: 20120601
  Receipt Date: 20120529
  Transmission Date: 20120825
  Serious: Yes (Other)
  Sender: FDA-Public Use
  Company Number: US-PFIZER INC-2012100399

PATIENT
  Sex: Female
  Weight: 56.689 kg

DRUGS (5)
  1. RISPERDAL [Suspect]
     Dosage: 1 MG, 2X/DAY
     Route: 048
  2. WARFARIN SODIUM [Concomitant]
     Dosage: UNK
  3. RISPERDAL [Suspect]
     Indication: SCHIZOPHRENIA, PARANOID TYPE
     Dosage: 2 MG, 1X/DAY
     Route: 048
     Dates: start: 20060101
  4. RISPERDAL [Suspect]
     Indication: SCHIZOPHRENIA, PARANOID TYPE
     Dosage: UNK
  5. ZOLOFT [Suspect]
     Indication: DEPRESSION
     Dosage: 100 MG, 1X/DAY
     Route: 048
     Dates: start: 20070101

REACTIONS (7)
  - PNEUMONIA [None]
  - URINARY TRACT INFECTION [None]
  - DIABETES MELLITUS [None]
  - SOMNOLENCE [None]
  - SCHIZOPHRENIA [None]
  - PARANOIA [None]
  - COMA [None]
